FAERS Safety Report 20765027 (Version 1)
Quarter: 2022Q2

REPORT INFORMATION
  Report Type: Spontaneous
  Country: US (occurrence: US)
  Receive Date: 20220428
  Receipt Date: 20220428
  Transmission Date: 20220721
  Serious: No
  Sender: FDA-Public Use
  Company Number: US-SA-SAC20220422000035

PATIENT
  Sex: Female

DRUGS (5)
  1. DUPIXENT [Suspect]
     Active Substance: DUPILUMAB
     Indication: Product used for unknown indication
     Route: 065
  2. MOMETASONE [Concomitant]
     Active Substance: MOMETASONE
  3. ELIDEL [Concomitant]
     Active Substance: PIMECROLIMUS
  4. DOXEPIN [Concomitant]
     Active Substance: DOXEPIN
  5. ALLEGRA [FEXOFENADINE HYDROCHLORIDE] [Concomitant]

REACTIONS (2)
  - Eczema [Unknown]
  - Urticaria [Unknown]
